FAERS Safety Report 14930944 (Version 1)
Quarter: 2018Q2

REPORT INFORMATION
  Report Type: Spontaneous
  Country: US (occurrence: US)
  Receive Date: 20180524
  Receipt Date: 20180524
  Transmission Date: 20180711
  Serious: Yes (Death, Hospitalization)
  Sender: FDA-Public Use
  Company Number: US-VIFOR (INTERNATIONAL) INC.-VIT-2016-05606

PATIENT
  Age: 77 Year
  Sex: Male

DRUGS (8)
  1. VELTASSA [Suspect]
     Active Substance: PATIROMER
     Indication: HYPERKALAEMIA
     Route: 048
     Dates: start: 20160715
  2. IPRATROPIUM BROMIDE. [Concomitant]
     Active Substance: IPRATROPIUM BROMIDE
  3. DIURIL [Concomitant]
     Active Substance: CHLOROTHIAZIDE
  4. ASMANEX [Concomitant]
     Active Substance: MOMETASONE FUROATE
     Dosage: 120 METERED DOSES
  5. METOPROLOL SUCCINATE. [Concomitant]
     Active Substance: METOPROLOL SUCCINATE
  6. SALBUTAMOL SULFATE [Concomitant]
     Active Substance: ALBUTEROL SULFATE
  7. COLECALCIFEROL [Concomitant]
     Active Substance: CHOLECALCIFEROL
  8. PREDNISONE. [Concomitant]
     Active Substance: PREDNISONE

REACTIONS (6)
  - Tibia fracture [Recovered/Resolved]
  - Death [Fatal]
  - Dyspnoea [Recovered/Resolved]
  - Fall [Recovered/Resolved]
  - Hospitalisation [Unknown]
  - Acute respiratory failure [Recovered/Resolved]

NARRATIVE: CASE EVENT DATE: 201609
